FAERS Safety Report 7560668-8 (Version None)
Quarter: 2011Q2

REPORT INFORMATION
  Report Type: 
  Country: None (occurrence: None)
  Receive Date: 20110621
  Receipt Date: 20110610
  Transmission Date: 20111010
  Serious: Yes (Other)
  Sender: FDA-Public Use
  Company Number: US-PERRIGO-11US004830

PATIENT
  Sex: Male
  Weight: 78.458 kg

DRUGS (3)
  1. PAIN PILLS [Concomitant]
     Indication: PAIN
     Route: 048
  2. DRUG USED IN DIABETES [Concomitant]
     Indication: DIABETES MELLITUS
     Dosage: UNK
     Route: 065
  3. MINOXIDIL [Suspect]
     Indication: HAIR GROWTH ABNORMAL
     Dosage: 1ML, 2-3 TIMES PER DAY
     Route: 061
     Dates: start: 20110604, end: 20110608

REACTIONS (12)
  - MALAISE [None]
  - INCORRECT DOSE ADMINISTERED [None]
  - GAIT DISTURBANCE [None]
  - BLOOD PRESSURE DECREASED [None]
  - DEHYDRATION [None]
  - DIARRHOEA [None]
  - ABDOMINAL PAIN UPPER [None]
  - EYE PAIN [None]
  - HEADACHE [None]
  - OFF LABEL USE [None]
  - VOMITING [None]
  - DIZZINESS [None]
